FAERS Safety Report 9148753 (Version 1)
Quarter: 2013Q1

REPORT INFORMATION
  Report Type: Spontaneous
  Country: US (occurrence: None)
  Receive Date: 20130221
  Receipt Date: 20130221
  Transmission Date: 20140127
  Serious: Yes (Death)
  Sender: FDA-Public Use
  Company Number: FK201300463

PATIENT
  Age: 45 Year
  Sex: Female
  Weight: 70 kg

DRUGS (12)
  1. PROPOFOL [Suspect]
     Indication: SEDATION
     Dosage: 140-400MG
     Route: 042
     Dates: start: 20121224, end: 20130101
  2. MIDAZOLAM [Concomitant]
  3. SUFENTA (SUFENTANIL CITRATE) (SUFENTANIL CITRATE) [Concomitant]
  4. NIMODIPINE (NIMODIPINE) (NIMODIPINE) [Concomitant]
  5. ARTERENOL (NOREPINEPHRINE HYDROCHLORIDE) (NOREPINEPHRINE HYDROCHLORIDE) [Concomitant]
  6. MINIRIN (DESMOPRESSIN ACETATE) (DESMOPRESSIN ACETATE) [Concomitant]
  7. HYDROCORTISONE (HYDROCORTISONE) (HYDROCORTISON) [Concomitant]
  8. L-THYROXIN (LEVOTHYROXINE SODIUM) (LEVOTHYROXINE SODIUM) [Concomitant]
  9. KCL (POTASSIUM CHLORIDE) (POTASSIUM CHLORIDE) [Concomitant]
  10. MEROPENEM (MEROPENEM) (MEROPENEM) [Concomitant]
  11. VANCOMYCIN (VANCOMYCIN) (VANCOMYCIN) [Concomitant]
  12. TAZOBAC (PIP/TAZO) (PIP/TAZO) [Concomitant]

REACTIONS (3)
  - Lactic acidosis [None]
  - Multi-organ failure [None]
  - Rhabdomyolysis [None]
